FAERS Safety Report 9951125 (Version 3)
Quarter: 2014Q2

REPORT INFORMATION
  Report Type: Spontaneous
  Country: GB (occurrence: GB)
  Receive Date: 20140304
  Receipt Date: 20140530
  Transmission Date: 20141212
  Serious: Yes (Other)
  Sender: FDA-Public Use
  Company Number: GB-TEVA-464949ISR

PATIENT
  Age: 26 Year
  Sex: Male

DRUGS (4)
  1. METHOTREXATE [Suspect]
     Indication: OSTEOSARCOMA
     Dates: start: 20130412, end: 20130822
  2. MEPACT [Suspect]
     Indication: OSTEOSARCOMA
     Dates: start: 20130822, end: 20130906
  3. CISPLATIN [Concomitant]
     Indication: OSTEOSARCOMA
     Dates: start: 20130412
  4. DOXORUBICIN [Concomitant]
     Indication: OSTEOSARCOMA
     Dates: start: 20130412

REACTIONS (2)
  - Demyelination [Recovered/Resolved]
  - Chills [Unknown]
